FAERS Safety Report 25058619 (Version 4)
Quarter: 2025Q2

REPORT INFORMATION
  Report Type: Spontaneous
  Country: US (occurrence: US)
  Receive Date: 20250310
  Receipt Date: 20250522
  Transmission Date: 20250717
  Serious: Yes (Other)
  Sender: NOVARTIS
  Company Number: US-002147023-NVSC2025US037514

PATIENT
  Sex: Female

DRUGS (1)
  1. KESIMPTA [Suspect]
     Active Substance: OFATUMUMAB
     Indication: Multiple sclerosis
     Route: 065

REACTIONS (9)
  - Neuropathy peripheral [Unknown]
  - Hypoaesthesia [Unknown]
  - Pain in extremity [Unknown]
  - Multiple sclerosis [Unknown]
  - Gait disturbance [Unknown]
  - Brain fog [Unknown]
  - Influenza like illness [Unknown]
  - Inflammation [Unknown]
  - Feeling abnormal [Unknown]
